FAERS Safety Report 23311794 (Version 1)
Quarter: 2023Q4

REPORT INFORMATION
  Report Type: Spontaneous
  Country: US (occurrence: None)
  Receive Date: 20231218
  Receipt Date: 20231218
  Transmission Date: 20240109
  Serious: No
  Sender: FDA-Public Use
  Company Number: None

PATIENT
  Age: 5 Month
  Sex: Female
  Weight: 7.2 kg

DRUGS (4)
  1. EUCRISA [Suspect]
     Active Substance: CRISABOROLE
     Indication: Eczema
     Route: 061
     Dates: start: 20231128, end: 20231128
  2. Nystatin cream PRN (none currently) [Concomitant]
  3. Hydrocortisone PRN [Concomitant]
  4. Biogaia probiotic + vitamin D [Concomitant]

REACTIONS (1)
  - Drug hypersensitivity [None]

NARRATIVE: CASE EVENT DATE: 20231128
